FAERS Safety Report 11999999 (Version 2)
Quarter: 2016Q3

REPORT INFORMATION
  Report Type: Report from Study
  Country: US (occurrence: US)
  Receive Date: 20160204
  Receipt Date: 20160908
  Transmission Date: 20161109
  Serious: Yes (Other)
  Sender: FDA-Public Use
  Company Number: US-NOVOPROD-478867

PATIENT
  Sex: Male

DRUGS (1)
  1. SAXENDA [Suspect]
     Active Substance: LIRAGLUTIDE
     Indication: OBESITY
     Route: 058

REACTIONS (3)
  - Chronic obstructive pulmonary disease [Unknown]
  - Blindness [Unknown]
  - Sleep apnoea syndrome [Unknown]
